FAERS Safety Report 11294770 (Version 1)
Quarter: 2015Q3

REPORT INFORMATION
  Report Type: Spontaneous
  Country: US (occurrence: None)
  Receive Date: 20150722
  Receipt Date: 20150722
  Transmission Date: 20151125
  Serious: No
  Sender: FDA-Public Use
  Company Number: None

PATIENT
  Age: 50 Year
  Sex: Female

DRUGS (1)
  1. ACTHAR [Suspect]
     Active Substance: CORTICOTROPIN
     Indication: RHEUMATOID ARTHRITIS
     Dosage: ACTHAR GEL 80U/ML 2X WEEK X 12 WEEKS INJECTION
     Dates: start: 20150428, end: 20150720

REACTIONS (2)
  - Drug ineffective [None]
  - Rheumatoid arthritis [None]

NARRATIVE: CASE EVENT DATE: 20150720
